FAERS Safety Report 9179237 (Version 1)
Quarter: 2012Q4

REPORT INFORMATION
  Report Type: 
  Country: US (occurrence: US)
  Receive Date: 20121029
  Receipt Date: 20121029
  Transmission Date: 20130627
  Serious: No
  Sender: FDA-Public Use
  Company Number: US-AMGEN-USASP2012052735

PATIENT
  Age: 36 Year
  Sex: Male

DRUGS (4)
  1. ENBREL [Suspect]
     Indication: PRODUCT USED FOR UNKNOWN INDICATION
     Dosage: 50 mg, qwk
     Route: 058
  2. BENADRYL ALLERGY                   /00000402/ [Concomitant]
     Dosage: 25 mg, UNK
  3. ZYRTEC [Concomitant]
     Dosage: 5 mg, UNK
  4. EPIPEN [Concomitant]
     Dosage: 0.3 mg, UNK

REACTIONS (2)
  - Hypersensitivity [Unknown]
  - Urticaria [Unknown]
